FAERS Safety Report 10219353 (Version 3)
Quarter: 2014Q2

REPORT INFORMATION
  Report Type: Spontaneous
  Country: US (occurrence: US)
  Receive Date: 20140605
  Receipt Date: 20140619
  Transmission Date: 20141212
  Serious: Yes (Hospitalization)
  Sender: FDA-Public Use
  Company Number: US-ACTELION-A-US2014-099689

PATIENT
  Age: 39 Year
  Sex: Female

DRUGS (5)
  1. OPSUMIT [Suspect]
     Indication: COR PULMONALE CHRONIC
     Dosage: 10 MG, QD
     Route: 048
     Dates: start: 20140114
  2. VELETRI [Suspect]
     Indication: COR PULMONALE CHRONIC
     Dosage: 35 UNK, UNK
     Route: 042
     Dates: start: 20140508
  3. REVATIO [Concomitant]
  4. TYVASO [Concomitant]
  5. REMODULIN [Concomitant]

REACTIONS (7)
  - Vomiting [Unknown]
  - No therapeutic response [Unknown]
  - Generalised oedema [Unknown]
  - Nausea [Unknown]
  - Diarrhoea [Unknown]
  - Pain [Unknown]
  - Catheter site infection [Unknown]
